FAERS Safety Report 23232675 (Version 1)
Quarter: 2023Q4

REPORT INFORMATION
  Report Type: Report from Study
  Country: US (occurrence: US)
  Receive Date: 20231128
  Receipt Date: 20231128
  Transmission Date: 20240110
  Serious: Yes (Other)
  Sender: FDA-Public Use
  Company Number: US-ABBVIE-5510316

PATIENT
  Age: 63 Year
  Sex: Female

DRUGS (1)
  1. RINVOQ [Suspect]
     Active Substance: UPADACITINIB
     Indication: Product used for unknown indication
     Route: 048
     Dates: end: 202311

REACTIONS (3)
  - Sinus operation [Recovering/Resolving]
  - Procedural pain [Unknown]
  - Post procedural discomfort [Recovered/Resolved]

NARRATIVE: CASE EVENT DATE: 20231120
